FAERS Safety Report 10416941 (Version 3)
Quarter: 2014Q3

REPORT INFORMATION
  Report Type: Spontaneous
  Country: US (occurrence: US)
  Receive Date: 20140828
  Receipt Date: 20140929
  Transmission Date: 20150326
  Serious: Yes (Other)
  Sender: FDA-Public Use
  Company Number: US-GILEAD-2014-0113363

PATIENT
  Age: 71 Year
  Sex: Female

DRUGS (5)
  1. LETAIRIS [Suspect]
     Active Substance: AMBRISENTAN
     Indication: PRODUCT USED FOR UNKNOWN INDICATION
     Dosage: 10 MG, QD
     Route: 065
     Dates: start: 20110726
  2. REVATIO [Concomitant]
     Active Substance: SILDENAFIL CITRATE
  3. O2 /00150301/ [Suspect]
     Active Substance: OXYGEN
     Indication: PRODUCT USED FOR UNKNOWN INDICATION
     Route: 065
  4. VENTAVIS [Suspect]
     Active Substance: ILOPROST
     Indication: PRODUCT USED FOR UNKNOWN INDICATION
     Route: 065
  5. COUMADIN [Concomitant]
     Active Substance: WARFARIN SODIUM

REACTIONS (13)
  - Ageusia [Unknown]
  - Somnolence [Unknown]
  - Rash pruritic [Unknown]
  - Anger [Unknown]
  - Aptyalism [Unknown]
  - Skin exfoliation [Unknown]
  - Swollen tongue [Unknown]
  - Cardiac assistance device user [Unknown]
  - Dry throat [Unknown]
  - Gait disturbance [Unknown]
  - Atrial fibrillation [Unknown]
  - Hypogeusia [Unknown]
  - Pruritus [Unknown]
